FAERS Safety Report 9398554 (Version 1)
Quarter: 2013Q3

REPORT INFORMATION
  Report Type: Spontaneous
  Country: FR (occurrence: FR)
  Receive Date: 20130712
  Receipt Date: 20130712
  Transmission Date: 20140515
  Serious: Yes (Hospitalization)
  Sender: FDA-Public Use
  Company Number: FR-BRISTOL-MYERS SQUIBB COMPANY-19091651

PATIENT
  Age: 80 Year
  Sex: Female

DRUGS (10)
  1. COUMADINE [Suspect]
     Indication: INTERNATIONAL NORMALISED RATIO
     Dosage: INTRUPTED ON 2JUL13, REINTRODUCED ON 3JUL13?DOSE RAISED TO 3MG/DAY
     Route: 048
  2. ATORVASTATIN [Concomitant]
  3. PREVISCAN [Concomitant]
     Dates: start: 2010
  4. PRAVASTATINE [Concomitant]
  5. STAGID [Concomitant]
     Indication: DIABETES MELLITUS
  6. LOXEN [Concomitant]
  7. CYCLOVIR [Concomitant]
  8. INEXIUM [Concomitant]
  9. CORDARONE [Concomitant]
  10. PAROXETINE [Concomitant]

REACTIONS (2)
  - Skin discolouration [Unknown]
  - International normalised ratio increased [Unknown]
